FAERS Safety Report 14301017 (Version 2)
Quarter: 2018Q3

REPORT INFORMATION
  Report Type: Spontaneous
  Country: US (occurrence: US)
  Receive Date: 20171219
  Receipt Date: 20180731
  Transmission Date: 20181010
  Serious: No
  Sender: FDA-Public Use
  Company Number: US-PFIZER INC-2017456252

PATIENT
  Age: 15 Year
  Sex: Male

DRUGS (1)
  1. GENOTROPIN [Suspect]
     Active Substance: SOMATROPIN
     Indication: GROWTH HORMONE DEFICIENCY
     Dosage: 2.2 MG, DAILY (SIX DAYS ON AND ONE DAY OFF)
     Route: 058
     Dates: start: 201711

REACTIONS (4)
  - Tremor [Unknown]
  - Injection site vesicles [Unknown]
  - Wrong technique in device usage process [Unknown]
  - Pain in extremity [Unknown]

NARRATIVE: CASE EVENT DATE: 20171212
